FAERS Safety Report 24524906 (Version 1)
Quarter: 2024Q4

REPORT INFORMATION
  Report Type: Spontaneous
  Country: GB (occurrence: GB)
  Receive Date: 20241019
  Receipt Date: 20241019
  Transmission Date: 20250115
  Serious: Yes (Life-Threatening, Hospitalization, Other)
  Sender: AUROBINDO
  Company Number: GB-MHRA-MED-202410071620026110-BRDVS

PATIENT
  Age: 17 Year
  Sex: Male
  Weight: 65 kg

DRUGS (1)
  1. SOLIFENACIN SUCCINATE [Suspect]
     Active Substance: SOLIFENACIN SUCCINATE
     Indication: Enuresis
     Dosage: 10 MILLIGRAM, ONCE A DAY (10MG ONCE A DAY AT NIGHT )
     Route: 065
     Dates: start: 20240710, end: 20240825

REACTIONS (1)
  - Atrioventricular block complete [Recovered/Resolved]

NARRATIVE: CASE EVENT DATE: 20240825
